FAERS Safety Report 6300557-X (Version None)
Quarter: 2009Q3

REPORT INFORMATION
  Report Type: 
  Country: None (occurrence: None)
  Receive Date: 20090806
  Receipt Date: 20090605
  Transmission Date: 20100115
  Serious: No
  Sender: FDA-Public Use
  Company Number: US-ABBOTT-09P-163-0578418-00

PATIENT
  Sex: Female
  Weight: 77.18 kg

DRUGS (7)
  1. DEPAKOTE ER [Suspect]
     Indication: BIPOLAR DISORDER
     Dosage: 1500MG/DAILY
     Dates: start: 20070101
  2. RISPERDAL [Concomitant]
     Indication: BIPOLAR DISORDER
  3. DETROL LA [Concomitant]
     Indication: POLLAKIURIA
     Dosage: DAILY
  4. ARIMIDEX [Concomitant]
     Indication: BREAST CANCER
     Dosage: DAILY
     Dates: start: 20050101
  5. NICOTINE [Concomitant]
     Indication: TOBACCO USER
     Route: 048
     Dates: start: 20090101
  6. NICOTINE [Concomitant]
     Indication: PROPHYLAXIS
  7. XANAX [Concomitant]
     Indication: ANXIETY

REACTIONS (1)
  - WEIGHT LOSS POOR [None]
